FAERS Safety Report 17137355 (Version 1)
Quarter: 2019Q4

REPORT INFORMATION
  Report Type: Spontaneous
  Country: US (occurrence: US)
  Receive Date: 20191210
  Receipt Date: 20191210
  Transmission Date: 20200122
  Serious: No
  Sender: FDA-Public Use
  Company Number: US-VIFOR (INTERNATIONAL) INC.-VIT-2019-13484

PATIENT
  Sex: Male

DRUGS (7)
  1. VELTASSA [Suspect]
     Active Substance: PATIROMER
     Indication: BLOOD POTASSIUM INCREASED
     Dates: start: 201909, end: 201910
  2. VELTASSA [Suspect]
     Active Substance: PATIROMER
     Dates: start: 201910, end: 20191111
  3. METOPROLOL. [Concomitant]
     Active Substance: METOPROLOL
  4. METROMIN [Concomitant]
     Indication: BLOOD GLUCOSE INCREASED
  5. VELTASSA [Suspect]
     Active Substance: PATIROMER
     Dates: start: 20191112
  6. ASPIRIN. [Concomitant]
     Active Substance: ASPIRIN
  7. FUROSEMIDE. [Concomitant]
     Active Substance: FUROSEMIDE

REACTIONS (3)
  - Abdominal pain upper [Not Recovered/Not Resolved]
  - Abdominal discomfort [Not Recovered/Not Resolved]
  - Gastroenteritis viral [Unknown]

NARRATIVE: CASE EVENT DATE: 2019
